FAERS Safety Report 5397900-5 (Version None)
Quarter: 2007Q3

REPORT INFORMATION
  Report Type: 
  Country: None (occurrence: None)
  Receive Date: 20070723
  Receipt Date: 20070723
  Transmission Date: 20080115
  Serious: Yes (Other)
  Sender: FDA-Public Use
  Company Number: None

PATIENT
  Age: 58 Year
  Sex: Female
  Weight: 74.8435 kg

DRUGS (1)
  1. NATURAL WHITE SENSITIVE TOOTHPAS 128G PN 5% SF .025% LORNAMEAD BRANDS [Suspect]
     Indication: SENSITIVITY OF TEETH
     Dosage: 2 TIMES A DAY
     Dates: start: 20070601, end: 20070622

REACTIONS (11)
  - ABDOMINAL PAIN UPPER [None]
  - AGEUSIA [None]
  - CHEST PAIN [None]
  - CRYING [None]
  - GASTRIC DISORDER [None]
  - MUCOSAL DRYNESS [None]
  - NASAL DRYNESS [None]
  - ORAL INTAKE REDUCED [None]
  - PAROSMIA [None]
  - TOOTHACHE [None]
  - WEIGHT DECREASED [None]
